FAERS Safety Report 7332761-6 (Version None)
Quarter: 2011Q1

REPORT INFORMATION
  Report Type: 
  Country: None (occurrence: None)
  Receive Date: 20110304
  Receipt Date: 20100908
  Transmission Date: 20110831
  Serious: Yes (Other)
  Sender: FDA-Public Use
  Company Number: US-BAYER-201029610NA

PATIENT
  Sex: Female
  Weight: 68.027 kg

DRUGS (6)
  1. IBUPROFEN [Concomitant]
     Dosage: UNK
     Dates: start: 20020301, end: 20040601
  2. YASMIN [Suspect]
     Indication: ORAL CONTRACEPTION
     Route: 048
     Dates: start: 20070801, end: 20090401
  3. OCELLA [Suspect]
     Indication: ORAL CONTRACEPTION
     Dosage: UNK
     Dates: start: 20080806, end: 20100401
  4. NAPROXEN [Concomitant]
     Dosage: UNK
     Dates: start: 20000101
  5. YAZ [Suspect]
     Dosage: UNK
     Dates: start: 20080124, end: 20080805
  6. LEXAPRO [Concomitant]
     Indication: DEPRESSION

REACTIONS (6)
  - CHOLECYSTITIS CHRONIC [None]
  - ABDOMINAL PAIN UPPER [None]
  - CHOLELITHIASIS [None]
  - GALLBLADDER PAIN [None]
  - NAUSEA [None]
  - ABDOMINAL PAIN [None]
